FAERS Safety Report 7236069-9 (Version None)
Quarter: 2011Q1

REPORT INFORMATION
  Report Type: 
  Country: None (occurrence: None)
  Receive Date: 20110120
  Receipt Date: 20110111
  Transmission Date: 20110831
  Serious: Yes (Other)
  Sender: FDA-Public Use
  Company Number: US-ASTRAZENECA-2011SE02170

PATIENT
  Age: 640 Month
  Sex: Female

DRUGS (1)
  1. SEROQUEL [Suspect]
     Indication: DEPRESSION
     Dosage: 50-100 MG AT NIGHT
     Route: 048

REACTIONS (3)
  - BREAST CANCER [None]
  - DRUG DOSE OMISSION [None]
  - INSOMNIA [None]
